FAERS Safety Report 4590168-9 (Version None)
Quarter: 2005Q1

REPORT INFORMATION
  Report Type: 
  Country: None (occurrence: None)
  Receive Date: 20050217
  Receipt Date: 20050211
  Transmission Date: 20050727
  Serious: Yes (Hospitalization)
  Sender: FDA-Public Use
  Company Number: KII-2005-0015135

PATIENT
  Age: 49 Year
  Sex: Male

DRUGS (3)
  1. MORPHINE SULFATE [Suspect]
     Indication: PAIN
     Dosage: ORAL
     Route: 048
  2. TRICYCLIC ANTIDEPRESSANTS () [Suspect]
  3. ACETYLSALICYLIC ACID SRT [Suspect]

REACTIONS (5)
  - AMMONIA INCREASED [None]
  - INCREASED BRONCHIAL SECRETION [None]
  - RHONCHI [None]
  - SOMNOLENCE [None]
  - SPEECH DISORDER [None]
